FAERS Safety Report 19886557 (Version 1)
Quarter: 2021Q3

REPORT INFORMATION
  Report Type: Spontaneous
  Country: PL (occurrence: PL)
  Receive Date: 20210927
  Receipt Date: 20210927
  Transmission Date: 20211014
  Serious: Yes (Life-Threatening)
  Sender: FDA-Public Use
  Company Number: PL-BAYER-2021A216236

PATIENT
  Age: 49 Year
  Sex: Female
  Weight: 75 kg

DRUGS (2)
  1. ULTRAVIST [Suspect]
     Active Substance: IOPROMIDE
     Indication: DIAGNOSTIC PROCEDURE
     Dosage: 70 UNIT UNKNOWN
     Route: 042
     Dates: start: 20210216, end: 20210216
  2. ULTRAVIST [Suspect]
     Active Substance: IOPROMIDE
     Indication: DIAGNOSTIC PROCEDURE
     Dosage: 70 UNIT UNKNOWN
     Route: 042
     Dates: start: 20210216, end: 20210216

REACTIONS (2)
  - Loss of consciousness [Unknown]
  - Skin lesion [Unknown]
